FAERS Safety Report 7874727-3 (Version None)
Quarter: 2011Q4

REPORT INFORMATION
  Report Type: 
  Country: None (occurrence: None)
  Receive Date: 20111031
  Receipt Date: 20111027
  Transmission Date: 20120403
  Serious: Yes (Other)
  Sender: FDA-Public Use
  Company Number: JP-PFIZER INC-2011263173

PATIENT
  Age: 75 Year
  Sex: Male

DRUGS (1)
  1. ALDACTONE [Suspect]
     Dosage: 25 MG/DAY
     Dates: start: 20111004, end: 20111020

REACTIONS (1)
  - INTERSTITIAL LUNG DISEASE [None]
